FAERS Safety Report 4845589-3 (Version None)
Quarter: 2005Q4

REPORT INFORMATION
  Report Type: 
  Country: None (occurrence: None)
  Receive Date: 20051201
  Receipt Date: 20051115
  Transmission Date: 20060501
  Serious: Yes (Hospitalization)
  Sender: FDA-Public Use
  Company Number: 2005BI015677

PATIENT
  Age: 49 Year
  Sex: Female

DRUGS (1)
  1. AVONEX [Suspect]
     Indication: MULTIPLE SCLEROSIS
     Dosage: 30 UG;QW;IM
     Route: 030
     Dates: start: 20040721

REACTIONS (6)
  - ABDOMINAL DISTENSION [None]
  - CONDITION AGGRAVATED [None]
  - GALLBLADDER DISORDER [None]
  - GASTRIC INFECTION [None]
  - MULTIPLE SCLEROSIS [None]
  - NEURALGIA [None]
